FAERS Safety Report 17721367 (Version 1)
Quarter: 2020Q2

REPORT INFORMATION
  Report Type: Spontaneous
  Country: US (occurrence: US)
  Receive Date: 20200429
  Receipt Date: 20200429
  Transmission Date: 20200714
  Serious: Yes (Death)
  Sender: FDA-Public Use
  Company Number: US-ROCHE-2526958

PATIENT
  Sex: Female
  Weight: 61.8 kg

DRUGS (6)
  1. POLYETHYLENE GLYCOL [Concomitant]
     Active Substance: POLYETHYLENE GLYCOLS
     Route: 048
  2. LOVENOX [Concomitant]
     Active Substance: ENOXAPARIN SODIUM
  3. BEVACIZUMAB. [Suspect]
     Active Substance: BEVACIZUMAB
     Indication: ENDOMETRIAL ADENOCARCINOMA
     Route: 042
     Dates: start: 20190822, end: 20191114
  4. OXYCODONE [Concomitant]
     Active Substance: OXYCODONE
     Route: 048
  5. SENNOSIDES. [Concomitant]
     Active Substance: SENNOSIDES
     Dosage: 8.6/50 MG
     Route: 048
  6. METHOCARBAMOL. [Concomitant]
     Active Substance: METHOCARBAMOL
     Route: 048

REACTIONS (3)
  - Vomiting [Unknown]
  - Large intestine perforation [Fatal]
  - Nausea [Unknown]
